FAERS Safety Report 12603374 (Version 1)
Quarter: 2016Q3

REPORT INFORMATION
  Report Type: Spontaneous
  Country: US (occurrence: US)
  Receive Date: 20160728
  Receipt Date: 20160728
  Transmission Date: 20161109
  Serious: No
  Sender: FDA-Public Use
  Company Number: US-AMGEN-USASP2016097409

PATIENT
  Age: 45 Year
  Sex: Female

DRUGS (2)
  1. HUMIRA [Suspect]
     Active Substance: ADALIMUMAB
     Indication: PRODUCT USED FOR UNKNOWN INDICATION
     Dosage: UNK
     Route: 065
  2. ENBREL [Suspect]
     Active Substance: ETANERCEPT
     Indication: RHEUMATOID ARTHRITIS
     Dosage: UNK
     Route: 065

REACTIONS (14)
  - Dyspnoea [Unknown]
  - Sneezing [Unknown]
  - Adverse drug reaction [Unknown]
  - Ill-defined disorder [Unknown]
  - Alopecia [Unknown]
  - Pharyngeal oedema [Unknown]
  - Pharyngeal erythema [Unknown]
  - Chest discomfort [Unknown]
  - Wheezing [Unknown]
  - Cough [Unknown]
  - Systemic lupus erythematosus rash [Unknown]
  - Nasal pruritus [Unknown]
  - Spinal disorder [Unknown]
  - Throat irritation [Unknown]

NARRATIVE: CASE EVENT DATE: 20160719
